FAERS Safety Report 6388662-3 (Version None)
Quarter: 2009Q4

REPORT INFORMATION
  Report Type: 
  Country: None (occurrence: None)
  Receive Date: 20091001
  Receipt Date: 20090918
  Transmission Date: 20100525
  Serious: Yes (Other)
  Sender: FDA-Public Use
  Company Number: 1000008032

PATIENT
  Age: 42 Year
  Sex: Female
  Weight: 110 kg

DRUGS (4)
  1. ESCITALOPRAM [Suspect]
     Indication: ANXIETY
     Dosage: 10 MG (10 MG,1 IN 1 D),ORAL
     Route: 048
     Dates: start: 20090714, end: 20090727
  2. ESCITALOPRAM [Suspect]
     Indication: ANXIETY
     Dosage: 5 MG (5 MG,1 IN 1 D),ORAL
     Route: 048
  3. OLANZAPINE [Concomitant]
  4. DEPO-PROVERA [Concomitant]

REACTIONS (3)
  - DIZZINESS [None]
  - GRAND MAL CONVULSION [None]
  - TINNITUS [None]
